FAERS Safety Report 5103081-5 (Version None)
Quarter: 2006Q3

REPORT INFORMATION
  Report Type: 
  Country: None (occurrence: None)
  Receive Date: 20060907
  Receipt Date: 20060824
  Transmission Date: 20061208
  Serious: Yes (Death)
  Sender: FDA-Public Use
  Company Number: 112282ISR

PATIENT
  Sex: Female

DRUGS (3)
  1. NITROFURANTOIN [Suspect]
     Dosage: ORAL
     Route: 048
     Dates: start: 20021001, end: 20021105
  2. FOLIC ACID [Concomitant]
  3. METHOTREXATE [Concomitant]

REACTIONS (2)
  - PANCYTOPENIA [None]
  - RASH [None]
